FAERS Safety Report 11088076 (Version 3)
Quarter: 2015Q3

REPORT INFORMATION
  Report Type: Spontaneous
  Country: US (occurrence: US)
  Receive Date: 20150504
  Receipt Date: 20150701
  Transmission Date: 20151125
  Serious: Yes (Hospitalization, Other)
  Sender: FDA-Public Use
  Company Number: US-PFIZER INC-2015143183

PATIENT
  Age: 50 Year
  Sex: Female

DRUGS (3)
  1. BUTRANS [Suspect]
     Active Substance: BUPRENORPHINE
     Dosage: UNK
     Dates: start: 2005
  2. MOBIC [Suspect]
     Active Substance: MELOXICAM
     Dosage: UNK
     Dates: start: 2005
  3. NEURONTIN [Suspect]
     Active Substance: GABAPENTIN
     Dosage: UNK
     Dates: start: 2005

REACTIONS (3)
  - Drug intolerance [Unknown]
  - Drug hypersensitivity [Recovered/Resolved]
  - Rash pruritic [Unknown]

NARRATIVE: CASE EVENT DATE: 2005
